FAERS Safety Report 12210909 (Version 1)
Quarter: 2016Q1

REPORT INFORMATION
  Report Type: Spontaneous
  Country: US (occurrence: None)
  Receive Date: 20160324
  Receipt Date: 20160324
  Transmission Date: 20160526
  Serious: No
  Sender: FDA-Public Use
  Company Number: None

PATIENT
  Sex: Male

DRUGS (1)
  1. MAKENA [Suspect]
     Active Substance: HYDROXYPROGESTERONE CAPROATE
     Indication: PREMATURE LABOUR
     Dosage: QWK
     Route: 030
     Dates: start: 20160224

REACTIONS (3)
  - Injection site erythema [None]
  - Injection site pruritus [None]
  - Injection site pain [None]

NARRATIVE: CASE EVENT DATE: 2016
